FAERS Safety Report 4286777-7 (Version None)
Quarter: 2004Q1

REPORT INFORMATION
  Report Type: 
  Country: None (occurrence: None)
  Receive Date: 20040206
  Receipt Date: 20030918
  Transmission Date: 20041129
  Serious: Yes (Hospitalization)
  Sender: FDA-Public Use
  Company Number: US-ROCHE-347469

PATIENT
  Age: 51 Year
  Sex: Male
  Weight: 81.6 kg

DRUGS (9)
  1. PEGASYS [Suspect]
     Indication: HEPATITIS C
     Route: 058
     Dates: start: 20030605, end: 20031014
  2. PEGASYS [Suspect]
     Route: 058
     Dates: start: 20031107
  3. COPEGUS [Suspect]
     Indication: HEPATITIS C
     Route: 048
     Dates: start: 20030605, end: 20031014
  4. COPEGUS [Suspect]
     Route: 048
     Dates: start: 20031107, end: 20040115
  5. COPEGUS [Suspect]
     Route: 048
     Dates: start: 20040115, end: 20040115
  6. COPEGUS [Suspect]
     Dosage: 200MG AM 400MG PM
     Route: 048
     Dates: start: 20040115
  7. LISINOPRIL [Concomitant]
     Indication: HYPERTENSION
     Route: 048
  8. HUMALOG [Concomitant]
     Dosage: 14 U AM AND 16 U PM.
     Route: 058
  9. EFFEXOR [Concomitant]
     Indication: DEPRESSION
     Route: 048

REACTIONS (11)
  - ABSCESS [None]
  - ASTHENIA [None]
  - BACTERAEMIA [None]
  - CHEST PAIN [None]
  - CYST [None]
  - FISTULA [None]
  - FOLLICULITIS [None]
  - INCISIONAL DRAINAGE [None]
  - MITRAL VALVE INCOMPETENCE [None]
  - PERIORBITAL OEDEMA [None]
  - RASH [None]
